FAERS Safety Report 9645495 (Version 8)
Quarter: 2014Q2

REPORT INFORMATION
  Report Type: Report from Study
  Country: US (occurrence: US)
  Receive Date: 20131025
  Receipt Date: 20140509
  Transmission Date: 20141212
  Serious: Yes (Other)
  Sender: FDA-Public Use
  Company Number: US-BAXTER-2013BAX041884

PATIENT
  Age: 68 Year
  Sex: Female
  Weight: 90.91 kg

DRUGS (13)
  1. GAMMAGARD S/D [Suspect]
     Indication: IMMUNODEFICIENCY COMMON VARIABLE
     Route: 042
     Dates: start: 201304
  2. GAMMAGARD S/D [Suspect]
     Route: 042
     Dates: start: 20131011, end: 20131011
  3. GAMMAGARD S/D [Suspect]
     Route: 042
     Dates: start: 20140123
  4. GAMMAGARD S/D [Suspect]
     Route: 042
     Dates: start: 20140102
  5. GAMMAGARD S/D [Suspect]
     Route: 042
     Dates: start: 20131212
  6. GAMMAGARD S/D [Suspect]
     Route: 042
     Dates: start: 20131121
  7. INFLUENZA [Suspect]
     Indication: IMMUNISATION
     Route: 030
     Dates: start: 201311, end: 201311
  8. LEVOXYL [Concomitant]
     Indication: PRODUCT USED FOR UNKNOWN INDICATION
  9. LISINOPRIL [Concomitant]
     Indication: PRODUCT USED FOR UNKNOWN INDICATION
  10. METFORMIN [Concomitant]
     Indication: PRODUCT USED FOR UNKNOWN INDICATION
  11. DIFLUCAN [Concomitant]
     Indication: FUNGAL INFECTION
     Dates: start: 2014
  12. TYLENOL [Concomitant]
     Indication: PREMEDICATION
  13. BENADRYL [Concomitant]
     Indication: PREMEDICATION

REACTIONS (5)
  - Headache [Recovered/Resolved]
  - Head discomfort [Recovered/Resolved]
  - Fatigue [Recovered/Resolved]
  - Musculoskeletal stiffness [Recovered/Resolved]
  - Parapsoriasis [Not Recovered/Not Resolved]
